FAERS Safety Report 15837772 (Version 1)
Quarter: 2018Q4

REPORT INFORMATION
  Report Type: Spontaneous
  Country: US (occurrence: US)
  Receive Date: 20181222
  Receipt Date: 20181222
  Transmission Date: 20190205
  Serious: Yes (Life-Threatening, Hospitalization)
  Sender: FDA-Public Use
  Company Number: None

PATIENT
  Age: 63 Year
  Sex: Male
  Weight: 157.5 kg

DRUGS (12)
  1. VALSARTAN 320MG [Suspect]
     Active Substance: VALSARTAN
     Indication: HYPERTENSION
     Dosage: ?          QUANTITY:1 TABLET(S);?
     Route: 048
     Dates: start: 20180113, end: 20181129
  2. AMLODIPINE [Suspect]
     Active Substance: AMLODIPINE BESYLATE
  3. NOVOLIN 70/30 [Concomitant]
     Active Substance: INSULIN HUMAN
  4. VITAMIN C [Concomitant]
     Active Substance: ASCORBIC ACID
  5. HYDROCHLOROTHIAZIDE. [Suspect]
     Active Substance: HYDROCHLOROTHIAZIDE
  6. ELIQUIS [Concomitant]
     Active Substance: APIXABAN
  7. IRON [Concomitant]
     Active Substance: IRON
  8. NEFEDIPINE [Concomitant]
  9. ONE A DAY ENERGY TABLET [Concomitant]
  10. PANTOPRAZOLE [Concomitant]
     Active Substance: PANTOPRAZOLE
  11. SUVSTATATIN [Concomitant]
  12. VITAMIN D GUMMY CHEWABLES [Concomitant]

REACTIONS (2)
  - Renal disorder [None]
  - Gastric ulcer haemorrhage [None]

NARRATIVE: CASE EVENT DATE: 20181208
